FAERS Safety Report 18768343 (Version 1)
Quarter: 2021Q1

REPORT INFORMATION
  Report Type: Spontaneous
  Country: US (occurrence: US)
  Receive Date: 20210121
  Receipt Date: 20210121
  Transmission Date: 20210419
  Serious: No
  Sender: FDA-Public Use
  Company Number: US-HORIZON-2021HZN00463

PATIENT
  Age: 8 Year
  Sex: Male

DRUGS (1)
  1. PROCYSBI [Suspect]
     Active Substance: CYSTEAMINE BITARTRATE
     Indication: CYSTINOSIS
     Dosage: 300MG (ONE PACKET) EVERY TWELVE HOURS
     Route: 050

REACTIONS (2)
  - Product dose omission issue [Unknown]
  - Illness [Unknown]
